FAERS Safety Report 5392605-9 (Version None)
Quarter: 2007Q3

REPORT INFORMATION
  Report Type: 
  Country: None (occurrence: None)
  Receive Date: 20070720
  Receipt Date: 20070718
  Transmission Date: 20080115
  Serious: Yes (Other)
  Sender: FDA-Public Use
  Company Number: US-MERCK-0707USA03023

PATIENT
  Sex: Female
  Weight: 50 kg

DRUGS (3)
  1. FOSAMAX [Suspect]
     Route: 048
     Dates: end: 20070701
  2. ALEVE [Suspect]
     Indication: MUSCULOSKELETAL PAIN
     Route: 048
     Dates: start: 20070617, end: 20070101
  3. TUMS [Suspect]
     Indication: PROPHYLAXIS
     Route: 065

REACTIONS (3)
  - GASTRIC DISORDER [None]
  - HAEMORRHAGE [None]
  - MUSCULOSKELETAL PAIN [None]
